FAERS Safety Report 13085174 (Version 2)
Quarter: 2017Q1

REPORT INFORMATION
  Report Type: Spontaneous
  Country: FR (occurrence: FR)
  Receive Date: 20170104
  Receipt Date: 20170113
  Transmission Date: 20170428
  Serious: Yes (Life-Threatening, Hospitalization)
  Sender: FDA-Public Use
  Company Number: FR-PFIZER INC-2016603684

PATIENT
  Age: 42 Year
  Sex: Female

DRUGS (5)
  1. TERCIAN /00759301/ [Suspect]
     Active Substance: CYAMEMAZINE
     Dosage: 100 MG
  2. METHADONE AP HP [Suspect]
     Active Substance: METHADONE HYDROCHLORIDE
     Dosage: 40MG/15 ML
     Dates: start: 2016
  3. XEROQUEL [Suspect]
     Active Substance: QUETIAPINE FUMARATE
     Dosage: 400 MG
     Route: 048
     Dates: start: 2016, end: 2016
  4. EFFEXOR LP [Suspect]
     Active Substance: VENLAFAXINE HYDROCHLORIDE
     Dosage: 75 MG, UNK
     Route: 065
     Dates: start: 2016, end: 2016
  5. ATENOLOL. [Suspect]
     Active Substance: ATENOLOL
     Dosage: TEVA; 50 MG
     Dates: start: 2016

REACTIONS (6)
  - Overdose [Recovered/Resolved]
  - Somnolence [Recovered/Resolved]
  - Suicide attempt [Unknown]
  - Confusional state [Recovered/Resolved]
  - Bradycardia [Recovered/Resolved]
  - Intentional overdose [Recovered/Resolved]

NARRATIVE: CASE EVENT DATE: 2016
